FAERS Safety Report 25604163 (Version 2)
Quarter: 2025Q3

REPORT INFORMATION
  Report Type: Spontaneous
  Country: US (occurrence: US)
  Receive Date: 20250725
  Receipt Date: 20250812
  Transmission Date: 20251020
  Serious: Yes (Death, Life-Threatening, Other)
  Sender: DR REDDYS
  Company Number: None

PATIENT
  Age: 69 Year
  Sex: Male

DRUGS (2)
  1. DOXORUBICIN [Suspect]
     Active Substance: DOXORUBICIN
     Indication: Kaposi^s sarcoma
  2. TACROLIMUS [Suspect]
     Active Substance: TACROLIMUS
     Indication: Immunosuppressant drug therapy
     Route: 065

REACTIONS (7)
  - Kaposi^s sarcoma [Fatal]
  - Pulmonary alveolar haemorrhage [Fatal]
  - Human herpesvirus 8 infection [Fatal]
  - Shock [Fatal]
  - Renal failure [Fatal]
  - Respiratory failure [Fatal]
  - Drug ineffective [Fatal]
